FAERS Safety Report 23539219 (Version 1)
Quarter: 2024Q1

REPORT INFORMATION
  Report Type: Spontaneous
  Country: US (occurrence: US)
  Receive Date: 20240219
  Receipt Date: 20240219
  Transmission Date: 20240410
  Serious: No
  Sender: FDA-Public Use
  Company Number: US-CTI BIOPHARMA-2023US04389

PATIENT

DRUGS (1)
  1. VONJO [Suspect]
     Active Substance: PACRITINIB
     Indication: Myelofibrosis
     Dosage: 100 MG, BID

REACTIONS (5)
  - Palpitations [Unknown]
  - Splenomegaly [Unknown]
  - Diaphragmatic disorder [Unknown]
  - Dyspnoea [Unknown]
  - Cough [Unknown]
